FAERS Safety Report 6421605-2 (Version None)
Quarter: 2009Q4

REPORT INFORMATION
  Report Type: 
  Country: None (occurrence: None)
  Receive Date: 20091030
  Receipt Date: 20091020
  Transmission Date: 20100525
  Serious: Yes (Hospitalization)
  Sender: FDA-Public Use
  Company Number: FR-CELGENEUS-056-21880-09091240

PATIENT
  Sex: Female
  Weight: 79 kg

DRUGS (5)
  1. REVLIMID [Suspect]
     Route: 048
     Dates: start: 20090817, end: 20090906
  2. DIGOXIN [Concomitant]
     Indication: HYPERTENSIVE CARDIOMYOPATHY
     Route: 065
     Dates: start: 20020101
  3. PREVISCAN [Concomitant]
     Indication: HYPERTENSIVE CARDIOMYOPATHY
     Route: 065
     Dates: start: 20011223
  4. LOXEN [Concomitant]
     Indication: HYPERTENSIVE CARDIOMYOPATHY
     Route: 048
     Dates: start: 20020101
  5. TAREG [Concomitant]
     Indication: HYPERTENSIVE CARDIOMYOPATHY
     Route: 048
     Dates: start: 20020101

REACTIONS (2)
  - FEBRILE BONE MARROW APLASIA [None]
  - LUNG DISORDER [None]
